FAERS Safety Report 9054907 (Version 1)
Quarter: 2013Q1

REPORT INFORMATION
  Report Type: Spontaneous
  Country: CA (occurrence: CA)
  Receive Date: 20130208
  Receipt Date: 20130208
  Transmission Date: 20140127
  Serious: Yes (Other)
  Sender: FDA-Public Use
  Company Number: CA-TEVA-384755USA

PATIENT
  Age: 18 Year
  Sex: Female

DRUGS (1)
  1. PLAN B [Suspect]
     Indication: POST COITAL CONTRACEPTION
     Dosage: 1.5 MILLIGRAM DAILY;
     Route: 048
     Dates: start: 20130123, end: 20130123

REACTIONS (7)
  - Throat tightness [Recovered/Resolved]
  - Dyspnoea [Recovered/Resolved]
  - Rash pruritic [Recovered/Resolved]
  - Back pain [Not Recovered/Not Resolved]
  - Dizziness [Recovered/Resolved]
  - Drug hypersensitivity [Unknown]
  - Abdominal pain upper [Not Recovered/Not Resolved]
